FAERS Safety Report 6150506-2 (Version None)
Quarter: 2009Q2

REPORT INFORMATION
  Report Type: 
  Country: None (occurrence: None)
  Receive Date: 20090409
  Receipt Date: 20090401
  Transmission Date: 20091009
  Serious: Yes (Hospitalization, Other)
  Sender: FDA-Public Use
  Company Number: GR-BAXTER-2008BH003321

PATIENT
  Age: 67 Year
  Sex: Female

DRUGS (17)
  1. CYCLOPHOSPHAMIDE [Suspect]
     Indication: BREAST CANCER
     Route: 042
     Dates: start: 20070510, end: 20070510
  2. CYCLOPHOSPHAMIDE [Suspect]
     Route: 042
     Dates: start: 20070524, end: 20070524
  3. CYCLOPHOSPHAMIDE [Suspect]
     Route: 042
     Dates: start: 20070614, end: 20070614
  4. METHOTREXATE [Suspect]
     Indication: BREAST CANCER
     Route: 065
     Dates: start: 20070524, end: 20070524
  5. METHOTREXATE [Suspect]
     Route: 065
     Dates: start: 20070510, end: 20070510
  6. METHOTREXATE [Suspect]
     Route: 065
     Dates: start: 20070614, end: 20070614
  7. FLUOROURACIL CAP [Suspect]
     Indication: BREAST CANCER
     Route: 065
     Dates: start: 20070510, end: 20070510
  8. FLUOROURACIL CAP [Suspect]
     Route: 065
     Dates: start: 20070524, end: 20070524
  9. FLUOROURACIL CAP [Suspect]
     Route: 065
     Dates: start: 20070614, end: 20070614
  10. ZOFRON [Concomitant]
     Indication: PROPHYLAXIS
     Route: 042
  11. ZANTAC [Concomitant]
     Indication: PROPHYLAXIS
     Route: 042
  12. FENISTIL [Concomitant]
     Indication: PROPHYLAXIS
     Route: 042
  13. DEXAMETHASONE 4MG TAB [Concomitant]
     Indication: PROPHYLAXIS
     Route: 042
  14. NEUPOGEN [Concomitant]
     Indication: DRUG USE FOR UNKNOWN INDICATION
     Route: 065
  15. DIAMICRON [Concomitant]
     Indication: DRUG USE FOR UNKNOWN INDICATION
     Route: 065
  16. MIOCARDOM [Concomitant]
     Indication: DRUG USE FOR UNKNOWN INDICATION
     Route: 065
  17. METFORMIN HYDROCHLORIDE [Concomitant]
     Indication: DRUG USE FOR UNKNOWN INDICATION
     Route: 065

REACTIONS (5)
  - ANAEMIA [None]
  - JUGULAR VEIN THROMBOSIS [None]
  - LEUKOPENIA [None]
  - NEUTROPENIA [None]
  - THROMBOCYTOPENIA [None]
